FAERS Safety Report 8613928-3 (Version None)
Quarter: 2012Q3

REPORT INFORMATION
  Report Type: 
  Country: None (occurrence: None)
  Receive Date: 20120823
  Receipt Date: 20120810
  Transmission Date: 20120928
  Serious: Yes (Hospitalization)
  Sender: FDA-Public Use
  Company Number: SE-009507513-1208SWE005814

PATIENT

DRUGS (3)
  1. TRILAFON [Suspect]
     Dosage: UNK
     Route: 048
     Dates: start: 20120101
  2. CISORDINOL INJECTION [Suspect]
     Dosage: UNK
     Dates: start: 20120101
  3. TRILAFON [Suspect]
     Dosage: UNK
     Dates: start: 20120101

REACTIONS (5)
  - FATIGUE [None]
  - ABASIA [None]
  - DIZZINESS [None]
  - MUSCULAR WEAKNESS [None]
  - ASTHENIA [None]
